FAERS Safety Report 18770950 (Version 1)
Quarter: 2021Q1

REPORT INFORMATION
  Report Type: Report from Study
  Country: US (occurrence: US)
  Receive Date: 20210121
  Receipt Date: 20210121
  Transmission Date: 20210419
  Serious: Yes (Death, Hospitalization)
  Sender: FDA-Public Use
  Company Number: US-JNJFOC-20201251582

PATIENT
  Age: 44 Year
  Sex: Female
  Weight: 103.97 kg

DRUGS (4)
  1. MACITENTAN [Suspect]
     Active Substance: MACITENTAN
     Indication: PULMONARY ARTERIAL HYPERTENSION
     Route: 048
  2. VELETRI [Suspect]
     Active Substance: EPOPROSTENOL
     Indication: PULMONARY ARTERIAL HYPERTENSION
     Route: 042
  3. XARELTO [Concomitant]
     Active Substance: RIVAROXABAN
  4. SILDENAFIL CITRATE. [Concomitant]
     Active Substance: SILDENAFIL CITRATE

REACTIONS (6)
  - Anaemia [Unknown]
  - Unevaluable event [Unknown]
  - Malnutrition [Unknown]
  - Death [Fatal]
  - Peripheral swelling [Unknown]
  - Fluid overload [Unknown]

NARRATIVE: CASE EVENT DATE: 20201222
